FAERS Safety Report 7677471-0 (Version None)
Quarter: 2011Q3

REPORT INFORMATION
  Report Type: 
  Country: None (occurrence: None)
  Receive Date: 20110811
  Receipt Date: 20110419
  Transmission Date: 20111222
  Serious: No
  Sender: FDA-Public Use
  Company Number: US-BRISTOL-MYERS SQUIBB COMPANY-15684111

PATIENT
  Age: 60 Year
  Sex: Male
  Weight: 59 kg

DRUGS (4)
  1. EXCEDRIN (MIGRAINE) [Suspect]
  2. NORVIR [Concomitant]
  3. REYATAZ [Suspect]
     Indication: HIV INFECTION
     Dosage: ABOUT 8 DAYS AGO
     Dates: start: 20110101
  4. TRUVADA [Concomitant]

REACTIONS (2)
  - RASH [None]
  - HEADACHE [None]
